FAERS Safety Report 6556265-3 (Version None)
Quarter: 2010Q1

REPORT INFORMATION
  Report Type: 
  Country: None (occurrence: None)
  Receive Date: 20100128
  Receipt Date: 20091005
  Transmission Date: 20100710
  Serious: Yes (Other)
  Sender: FDA-Public Use
  Company Number: US-TEVA-210400USA

PATIENT
  Sex: Female

DRUGS (1)
  1. COPAXONE [Suspect]
     Indication: MULTIPLE SCLEROSIS
     Route: 058

REACTIONS (9)
  - ABASIA [None]
  - ANAPHYLACTIC REACTION [None]
  - CYANOSIS [None]
  - DYSPNOEA [None]
  - HEART RATE DECREASED [None]
  - HYPOTENSION [None]
  - PHARYNGEAL OEDEMA [None]
  - SKIN DISCOLOURATION [None]
  - URTICARIA [None]
